FAERS Safety Report 6025695-0 (Version None)
Quarter: 2008Q4

REPORT INFORMATION
  Report Type: 
  Country: None (occurrence: None)
  Receive Date: 20081231
  Receipt Date: 20081208
  Transmission Date: 20090506
  Serious: Yes (Hospitalization)
  Sender: FDA-Public Use
  Company Number: FR-GENENTECH-274746

PATIENT
  Sex: Female

DRUGS (3)
  1. BEVACIZUMAB [Suspect]
     Indication: COLORECTAL CANCER
     Dosage: 325 MG, Q2W
     Route: 042
     Dates: start: 20081030
  2. CAPECITABINE [Suspect]
     Indication: COLORECTAL CANCER
     Dosage: 4000 MG, UNK
     Route: 048
     Dates: start: 20081030
  3. OXALIPLATIN [Suspect]
     Indication: COLORECTAL CANCER
     Dosage: 160 MG, Q2W
     Route: 042
     Dates: start: 20081030

REACTIONS (1)
  - GENERAL PHYSICAL HEALTH DETERIORATION [None]
